FAERS Safety Report 18248494 (Version 1)
Quarter: 2020Q3

REPORT INFORMATION
  Report Type: Spontaneous
  Country: US (occurrence: US)
  Receive Date: 20200909
  Receipt Date: 20200909
  Transmission Date: 20201103
  Serious: No
  Sender: FDA-Public Use
  Company Number: US-ELI_LILLY_AND_COMPANY-US202009003764

PATIENT
  Sex: Female

DRUGS (2)
  1. FORTEO [Suspect]
     Active Substance: TERIPARATIDE
     Indication: OSTEOARTHRITIS
     Dosage: UNK UNK, UNKNOWN
     Route: 065
     Dates: start: 20200820
  2. FORTEO [Suspect]
     Active Substance: TERIPARATIDE
     Indication: ROTATOR CUFF SYNDROME

REACTIONS (1)
  - Migraine with aura [Not Recovered/Not Resolved]
